FAERS Safety Report 9008145 (Version 1)
Quarter: 2012Q4

REPORT INFORMATION
  Report Type: Spontaneous
  Country: GB (occurrence: None)
  Receive Date: 20121227
  Receipt Date: 20121227
  Transmission Date: 20130627
  Serious: Yes (Other)
  Sender: FDA-Public Use
  Company Number: AUR-APL-2012-05534

PATIENT
  Age: 19 Year
  Sex: Male
  Weight: 70.76 kg

DRUGS (1)
  1. CITALOPRAM (CITALOPRAM) [Suspect]
     Indication: DRUG USE FOR UNKNOWN INDICATION

REACTIONS (2)
  - Obsessive-compulsive disorder [None]
  - Mental status changes [None]
